FAERS Safety Report 8370460-2 (Version None)
Quarter: 2012Q2

REPORT INFORMATION
  Report Type: 
  Country: None (occurrence: None)
  Receive Date: 20120518
  Receipt Date: 20120507
  Transmission Date: 20120825
  Serious: Yes (Other)
  Sender: FDA-Public Use
  Company Number: PHHY2012BR042070

PATIENT
  Age: 73 Year
  Sex: Male

DRUGS (2)
  1. DIOVAN HCT [Suspect]
     Indication: HYPERTENSION
     Dosage: 1 DF (320 MG VALSAR AND 12.5 MG HYDRO), AFTER BREAKFAST
  2. DIOCOMB SI [Suspect]
     Indication: CARDIAC DISORDER
     Dosage: 2 DF (80 MG VALSARTAN AND 20 MG SIMVASTATIN), A DAY
     Dates: start: 20041117

REACTIONS (1)
  - DIABETES MELLITUS [None]
